FAERS Safety Report 8771265 (Version 1)
Quarter: 2012Q4

REPORT INFORMATION
  Report Type: 
  Country: US (occurrence: US)
  Receive Date: 20120906
  Receipt Date: 20120906
  Transmission Date: 20130627
  Serious: Yes (Other)
  Sender: FDA-Public Use
  Company Number: US-VERTEX PHARMACEUTICAL INC.-2012-020547

PATIENT
  Sex: Female

DRUGS (7)
  1. INCIVEK [Suspect]
     Indication: HEPATITIS C
     Dosage: UNK
     Route: 048
     Dates: start: 201208
  2. RIBAVIRIN [Concomitant]
     Indication: HEPATITIS C
     Dosage: UNK
     Dates: start: 201208
  3. PEGINTERFERON ALFA-2A [Concomitant]
     Indication: HEPATITIS C
     Dosage: UNK
     Dates: start: 201208
  4. ATENOLOL [Concomitant]
  5. BENICAR HCT [Concomitant]
  6. ZOLOFT [Concomitant]
  7. LAMOTRIGINE [Concomitant]

REACTIONS (1)
  - Convulsion [Unknown]
